FAERS Safety Report 15248499 (Version 1)
Quarter: 2018Q3

REPORT INFORMATION
  Report Type: Spontaneous
  Country: US (occurrence: US)
  Receive Date: 20180807
  Receipt Date: 20180807
  Transmission Date: 20181010
  Serious: No
  Sender: FDA-Public Use
  Company Number: US-009507513-1808USA002720

PATIENT
  Age: 36 Year
  Sex: Female

DRUGS (1)
  1. NEXPLANON [Suspect]
     Active Substance: ETONOGESTREL
     Indication: CONTRACEPTION
     Dosage: 1 IMPLANT, ONCE EVERY 3 YEARS
     Route: 059
     Dates: start: 20170818, end: 20180727

REACTIONS (1)
  - Dysmenorrhoea [Unknown]

NARRATIVE: CASE EVENT DATE: 20180727
